FAERS Safety Report 5710591-6 (Version None)
Quarter: 2008Q2

REPORT INFORMATION
  Report Type: 
  Country: None (occurrence: None)
  Receive Date: 20080415
  Receipt Date: 20080402
  Transmission Date: 20081010
  Serious: Yes (Hospitalization)
  Sender: FDA-Public Use
  Company Number: 2008BI007440

PATIENT
  Age: 42 Year
  Sex: Female

DRUGS (2)
  1. TYSABRI [Suspect]
     Indication: MULTIPLE SCLEROSIS
     Dosage: 300 MG, QM,  IV
     Route: 042
     Dates: start: 20070418
  2. AVONEX [Concomitant]

REACTIONS (2)
  - GASTROENTERITIS [None]
  - IRRITABLE BOWEL SYNDROME [None]
